FAERS Safety Report 16583793 (Version 1)
Quarter: 2019Q3

REPORT INFORMATION
  Report Type: Spontaneous
  Country: US (occurrence: US)
  Receive Date: 20190717
  Receipt Date: 20190717
  Transmission Date: 20191004
  Serious: Yes (Hospitalization)
  Sender: FDA-Public Use
  Company Number: US-EMCURE PHARMACEUTICALS LTD-2019-EPL-0348

PATIENT
  Age: 16 Year
  Sex: Female

DRUGS (1)
  1. ACETAMINOPHEN. [Suspect]
     Active Substance: ACETAMINOPHEN
     Dosage: ABOUT 60 OF THE 500-MG PILLS

REACTIONS (4)
  - Mental impairment [Unknown]
  - Intentional overdose [Unknown]
  - Headache [Unknown]
  - Chest discomfort [Unknown]
